FAERS Safety Report 12550681 (Version 1)
Quarter: 2016Q3

REPORT INFORMATION
  Report Type: Spontaneous
  Country: US (occurrence: US)
  Receive Date: 20160712
  Receipt Date: 20160712
  Transmission Date: 20161109
  Serious: Yes (Hospitalization)
  Sender: FDA-Public Use
  Company Number: US-SAOL THERAPEUTICS-2016SAO00138

PATIENT
  Sex: Female

DRUGS (2)
  1. BACLOFEN. [Suspect]
     Active Substance: BACLOFEN
     Indication: MULTIPLE SCLEROSIS
  2. BACLOFEN. [Suspect]
     Active Substance: BACLOFEN
     Indication: MUSCLE SPASTICITY
     Dosage: 112.98 ?G, \DAY
     Route: 037

REACTIONS (6)
  - Device alarm issue [Unknown]
  - Device infusion issue [Unknown]
  - Overdose [Unknown]
  - Muscle spasticity [Unknown]
  - Muscle spasms [None]
  - Hypotonia [Unknown]

NARRATIVE: CASE EVENT DATE: 2016
